FAERS Safety Report 21555386 (Version 1)
Quarter: 2022Q4

REPORT INFORMATION
  Report Type: Spontaneous
  Country: US (occurrence: None)
  Receive Date: 20221103
  Receipt Date: 20221103
  Transmission Date: 20230113
  Serious: Yes (Other)
  Sender: FDA-Public Use
  Company Number: None

PATIENT
  Sex: Female

DRUGS (1)
  1. OXYCODONE HYDROCHLORIDE [Suspect]
     Active Substance: OXYCODONE HYDROCHLORIDE
     Indication: Pain

REACTIONS (6)
  - Headache [None]
  - Nausea [None]
  - Drug ineffective [None]
  - Manufacturing materials issue [None]
  - Product label issue [None]
  - Withdrawal syndrome [None]

NARRATIVE: CASE EVENT DATE: 20221031
